FAERS Safety Report 8241503-1 (Version None)
Quarter: 2012Q1

REPORT INFORMATION
  Report Type: 
  Country: None (occurrence: None)
  Receive Date: 20120328
  Receipt Date: 20110509
  Transmission Date: 20120608
  Serious: No
  Sender: FDA-Public Use
  Company Number: US-COVIDIEN/TYCO HEALTHCARE/MALLINCKRODT-T201100930

PATIENT
  Sex: Female

DRUGS (5)
  1. CIPROFLOXACIN [Interacting]
  2. ATIVAN [Concomitant]
     Dosage: UNK
  3. METHADOSE [Suspect]
     Dosage: UNK
  4. LOPRESSOR [Concomitant]
     Dosage: UNK
  5. METHADONE HCL [Concomitant]
     Indication: DRUG WITHDRAWAL MAINTENANCE THERAPY

REACTIONS (5)
  - BACK PAIN [None]
  - PALPITATIONS [None]
  - ASTHENIA [None]
  - PAIN IN EXTREMITY [None]
  - PAIN [None]
